FAERS Safety Report 7611105-6 (Version None)
Quarter: 2011Q3

REPORT INFORMATION
  Report Type: 
  Country: None (occurrence: None)
  Receive Date: 20110715
  Receipt Date: 20110630
  Transmission Date: 20111222
  Serious: Yes (Hospitalization)
  Sender: FDA-Public Use
  Company Number: US-AMGEN-USACT2011032054

PATIENT
  Age: 57 Year
  Sex: Female

DRUGS (6)
  1. FUROSEMIDE [Concomitant]
     Dosage: 80 MG, BID
  2. ENALAPRIL MALEATE [Concomitant]
     Dosage: 5 MG, BID
  3. SPIRONOLACTONE [Concomitant]
     Dosage: 25 MG, UNK
  4. BLINDED DARBEPOETIN ALFA [Suspect]
     Indication: CARDIAC FAILURE
     Dates: start: 20070205
  5. PLACEBO [Suspect]
     Indication: CARDIAC FAILURE
     Dates: start: 20070205
  6. DIGOXIN [Concomitant]
     Dosage: 0.25 MG, UNK

REACTIONS (3)
  - PULMONARY MASS [None]
  - ATRIAL FIBRILLATION [None]
  - CHEST PAIN [None]
